FAERS Safety Report 5091784-0 (Version None)
Quarter: 2006Q3

REPORT INFORMATION
  Report Type: 
  Country: None (occurrence: None)
  Receive Date: 20060829
  Receipt Date: 20060524
  Transmission Date: 20061208
  Serious: No
  Sender: FDA-Public Use
  Company Number: US-BRISTOL-MYERS SQUIBB COMPANY-13389622

PATIENT
  Age: 56 Year
  Sex: Female
  Weight: 76 kg

DRUGS (7)
  1. ERBITUX [Suspect]
     Indication: RECTAL CANCER
     Route: 042
     Dates: start: 20060524, end: 20060524
  2. BENADRYL [Suspect]
     Indication: PREMEDICATION
     Route: 042
  3. CAMPTOSAR [Concomitant]
     Dates: start: 20060524
  4. FLUOROURACIL [Concomitant]
  5. LEUCOVORIN CALCIUM [Concomitant]
  6. DECADRON [Concomitant]
     Indication: PREMEDICATION
     Route: 042
  7. TAGAMET [Concomitant]
     Indication: PREMEDICATION
     Route: 042

REACTIONS (4)
  - DYSPHONIA [None]
  - FLUSHING [None]
  - PARAESTHESIA [None]
  - RASH [None]
